FAERS Safety Report 12248517 (Version 1)
Quarter: 2016Q2

REPORT INFORMATION
  Report Type: Spontaneous
  Country: US (occurrence: None)
  Receive Date: 20160407
  Receipt Date: 20160407
  Transmission Date: 20160815
  Serious: Yes (Other)
  Sender: FDA-Public Use
  Company Number: None

PATIENT
  Age: 61 Year
  Sex: Female
  Weight: 79.38 kg

DRUGS (10)
  1. DULOXETINE. [Concomitant]
     Active Substance: DULOXETINE
  2. CIMZIA [Concomitant]
     Active Substance: CERTOLIZUMAB PEGOL
  3. FOLIC ACID. [Concomitant]
     Active Substance: FOLIC ACID
  4. BISOPOROL [Concomitant]
  5. DUOTAB [Concomitant]
  6. HUMIRA [Suspect]
     Active Substance: ADALIMUMAB
     Indication: RHEUMATOID ARTHRITIS
     Dosage: 1 INJECTION(S) EVERY 2 WEEKS INHALATION
     Route: 055
     Dates: start: 20151001, end: 20151201
  7. HCTZ [Concomitant]
     Active Substance: HYDROCHLOROTHIAZIDE
  8. METHOTREXATE [Concomitant]
     Active Substance: METHOTREXATE
  9. SYMAX [Concomitant]
     Active Substance: HYOSCYAMINE SULFATE
  10. VITAMIN D [Concomitant]
     Active Substance: CHOLECALCIFEROL

REACTIONS (4)
  - Eye swelling [None]
  - Cough [None]
  - Squamous cell carcinoma of skin [None]
  - Fatigue [None]

NARRATIVE: CASE EVENT DATE: 20151001
